FAERS Safety Report 6370889-8 (Version None)
Quarter: 2009Q3

REPORT INFORMATION
  Report Type: 
  Country: None (occurrence: None)
  Receive Date: 20090923
  Receipt Date: 20070712
  Transmission Date: 20100115
  Serious: No
  Sender: FDA-Public Use
  Company Number: US-ASTRAZENECA-2006UW23627

PATIENT
  Age: 13408 Day
  Sex: Female
  Weight: 147.4 kg

DRUGS (26)
  1. SEROQUEL [Suspect]
     Indication: ANXIETY
     Route: 048
     Dates: start: 20050718
  2. SEROQUEL [Suspect]
     Indication: BIPOLAR DISORDER
     Route: 048
     Dates: start: 20050718
  3. SEROQUEL [Suspect]
     Indication: DEPRESSION
     Route: 048
     Dates: start: 20050718
  4. SEROQUEL [Suspect]
     Dosage: 25 MG-200 MG
     Route: 048
     Dates: start: 20050331
  5. SEROQUEL [Suspect]
     Dosage: 25 MG-200 MG
     Route: 048
     Dates: start: 20050331
  6. SEROQUEL [Suspect]
     Dosage: 25 MG-200 MG
     Route: 048
     Dates: start: 20050331
  7. REGLAN [Concomitant]
  8. TAGAMET [Concomitant]
  9. TOPROL-XL [Concomitant]
  10. ATIVAN [Concomitant]
  11. BENICAR [Concomitant]
  12. CATAPRES [Concomitant]
  13. GLIPIZIDE [Concomitant]
  14. ZYPREXA [Concomitant]
  15. VERAPAMIL [Concomitant]
  16. AXID [Concomitant]
  17. PROVENTIL-HFA [Concomitant]
  18. AVANDIA [Concomitant]
  19. GLUCOPHAGE [Concomitant]
  20. BYETTA [Concomitant]
  21. DARVOCET [Concomitant]
  22. CELEBREX [Concomitant]
  23. LIPITOR [Concomitant]
  24. XANAX [Concomitant]
  25. XOPENEX [Concomitant]
  26. AVALIDE [Concomitant]

REACTIONS (2)
  - DIABETES MELLITUS [None]
  - TYPE 2 DIABETES MELLITUS [None]
